FAERS Safety Report 5913848-9 (Version None)
Quarter: 2008Q4

REPORT INFORMATION
  Report Type: 
  Country: None (occurrence: None)
  Receive Date: 20081009
  Receipt Date: 20081003
  Transmission Date: 20090506
  Serious: Yes (Life-Threatening, Hospitalization, Disabling, Other)
  Sender: FDA-Public Use
  Company Number: A0750488A

PATIENT
  Age: 12 Year
  Sex: Male

DRUGS (2)
  1. ALBENZA [Suspect]
     Dosage: 400MG SINGLE DOSE
     Route: 048
     Dates: start: 20080919, end: 20080919
  2. NO CONCURRENT MEDICATION [Concomitant]

REACTIONS (11)
  - BLOOD IMMUNOGLOBULIN A DECREASED [None]
  - BLOOD IMMUNOGLOBULIN E INCREASED [None]
  - DIARRHOEA [None]
  - DYSPEPSIA [None]
  - EATING DISORDER [None]
  - HYPERSENSITIVITY [None]
  - LETHARGY [None]
  - NAUSEA [None]
  - VOMITING [None]
  - WEIGHT DECREASED [None]
  - WHITE BLOOD CELLS STOOL POSITIVE [None]
